FAERS Safety Report 15577750 (Version 2)
Quarter: 2018Q4

REPORT INFORMATION
  Report Type: Spontaneous
  Country: IL (occurrence: IL)
  Receive Date: 20181102
  Receipt Date: 20181112
  Transmission Date: 20190205
  Serious: No
  Sender: FDA-Public Use
  Company Number: IL-009507513-1811ISR000021

PATIENT
  Age: 25 Year
  Sex: Female

DRUGS (4)
  1. FEXOFENADINE [Concomitant]
     Active Substance: FEXOFENADINE\FEXOFENADINE HYDROCHLORIDE
     Dosage: 180 MILLIGRAM
  2. BUDICORT [Concomitant]
  3. SYMBICORT [Concomitant]
     Active Substance: BUDESONIDE\FORMOTEROL FUMARATE DIHYDRATE
  4. SINGULAIR [Suspect]
     Active Substance: MONTELUKAST SODIUM
     Indication: HYPERSENSITIVITY
     Dosage: UNK
     Route: 048
     Dates: start: 20121225

REACTIONS (3)
  - Suffocation feeling [Unknown]
  - Cough [Unknown]
  - Palpitations [Unknown]

NARRATIVE: CASE EVENT DATE: 20121225
